FAERS Safety Report 5898342-6 (Version None)
Quarter: 2008Q3

REPORT INFORMATION
  Report Type: 
  Country: None (occurrence: None)
  Receive Date: 20080925
  Receipt Date: 20070925
  Transmission Date: 20090109
  Serious: No
  Sender: FDA-Public Use
  Company Number: A0683920A

PATIENT
  Age: 52 Year
  Sex: Male

DRUGS (2)
  1. WELLBUTRIN XL [Suspect]
     Indication: DEPRESSION
     Dosage: 150MG PER DAY
     Route: 048
     Dates: start: 20070901
  2. TRANQUILIZER [Concomitant]

REACTIONS (2)
  - INSOMNIA [None]
  - IRRITABILITY [None]
